FAERS Safety Report 13370535 (Version 1)
Quarter: 2017Q1

REPORT INFORMATION
  Report Type: Spontaneous
  Country: US (occurrence: US)
  Receive Date: 20170324
  Receipt Date: 20170324
  Transmission Date: 20170429
  Serious: No
  Sender: FDA-Public Use
  Company Number: US-ROCHE-1047521

PATIENT
  Age: 69 Year
  Sex: Female
  Weight: 61.74 kg

DRUGS (2)
  1. XOLAIR [Suspect]
     Active Substance: OMALIZUMAB
     Indication: ASTHMA
     Route: 065
     Dates: start: 20120202, end: 20120601
  2. SPRINTEC [Concomitant]
     Active Substance: ETHINYL ESTRADIOL\NORGESTIMATE
     Dosage: 1 TAB
     Route: 048
     Dates: start: 20120601

REACTIONS (1)
  - Palpable purpura [Recovered/Resolved]

NARRATIVE: CASE EVENT DATE: 201112
